FAERS Safety Report 12075750 (Version 1)
Quarter: 2016Q1

REPORT INFORMATION
  Report Type: Spontaneous
  Country: US (occurrence: US)
  Receive Date: 20160214
  Receipt Date: 20160214
  Transmission Date: 20160526
  Serious: No
  Sender: FDA-Public Use
  Company Number: US-AMGEN-USASP2016016588

PATIENT
  Age: 22 Year
  Sex: Female
  Weight: 44.44 kg

DRUGS (1)
  1. ENBREL [Suspect]
     Active Substance: ETANERCEPT
     Indication: RHEUMATOID ARTHRITIS
     Dosage: 50 MG, WEEKLY
     Route: 065
     Dates: start: 2015

REACTIONS (6)
  - Injection site swelling [Unknown]
  - Migraine [Unknown]
  - Injection site pruritus [Unknown]
  - Injection site bruising [Unknown]
  - Injection site reaction [Unknown]
  - Injection site rash [Unknown]

NARRATIVE: CASE EVENT DATE: 2015
